FAERS Safety Report 8367462-9 (Version None)
Quarter: 2012Q2

REPORT INFORMATION
  Report Type: 
  Country: None (occurrence: None)
  Receive Date: 20120517
  Receipt Date: 20120215
  Transmission Date: 20120825
  Serious: No
  Sender: FDA-Public Use
  Company Number: US-GLAXOSMITHKLINE-A0966865A

PATIENT
  Sex: Male

DRUGS (1)
  1. VOTRIENT [Suspect]
     Indication: RENAL CANCER
     Dosage: 800MG PER DAY
     Route: 065

REACTIONS (5)
  - HYPERTENSION [None]
  - HEART RATE DECREASED [None]
  - PHOTOSENSITIVITY REACTION [None]
  - HYPERGLYCAEMIA [None]
  - NAUSEA [None]
